FAERS Safety Report 7680696-1 (Version None)
Quarter: 2011Q3

REPORT INFORMATION
  Report Type: 
  Country: None (occurrence: None)
  Receive Date: 20110811
  Receipt Date: 20110811
  Transmission Date: 20111222
  Serious: Yes (Hospitalization, Disabling, Congenital Anomaly, Other)
  Sender: FDA-Public Use
  Company Number: None

PATIENT
  Age: 26 Year
  Sex: Male
  Weight: 54.4316 kg

DRUGS (1)
  1. ZYPREXA [Suspect]

REACTIONS (2)
  - DIABETES MELLITUS [None]
  - ADVERSE EVENT [None]
